FAERS Safety Report 6834372-5 (Version None)
Quarter: 2010Q3

REPORT INFORMATION
  Report Type: 
  Country: None (occurrence: None)
  Receive Date: 20100712
  Receipt Date: 20070416
  Transmission Date: 20110219
  Serious: No
  Sender: FDA-Public Use
  Company Number: US-PFIZER INC-2007030791

PATIENT
  Sex: Female
  Weight: 60 kg

DRUGS (12)
  1. CHANTIX [Suspect]
     Indication: SMOKING CESSATION THERAPY
     Dates: start: 20070201, end: 20070201
  2. ACETYLSALICYLIC ACID [Concomitant]
  3. ISOSORBIDE [Concomitant]
  4. BETAPACE [Concomitant]
  5. DIGITEK [Concomitant]
  6. ZOLOFT [Concomitant]
  7. EVISTA [Concomitant]
  8. TRICOR [Concomitant]
  9. ZOCOR [Concomitant]
  10. CLORAZEPATE DIPOTASSIUM [Concomitant]
  11. VITAMINS [Concomitant]
  12. CALCIUM ASCORBATE [Concomitant]

REACTIONS (1)
  - NAUSEA [None]
